FAERS Safety Report 8997213 (Version 4)
Quarter: 2013Q1

REPORT INFORMATION
  Report Type: Report from Study
  Country: LV (occurrence: LV)
  Receive Date: 20130104
  Receipt Date: 20130308
  Transmission Date: 20140127
  Serious: Yes (Hospitalization)
  Sender: FDA-Public Use
  Company Number: LV-JNJFOC-20130100813

PATIENT
  Age: 23 Year
  Sex: Male
  Weight: 92.4 kg

DRUGS (8)
  1. PALIPERIDONE PALMITATE [Suspect]
     Indication: SCHIZOPHRENIA
     Route: 030
     Dates: start: 20120104
  2. PALIPERIDONE PALMITATE [Suspect]
     Indication: SCHIZOPHRENIA
     Route: 030
     Dates: start: 20121214
  3. PHENAZEPAM [Concomitant]
     Indication: INITIAL INSOMNIA
     Route: 065
     Dates: start: 20120309
  4. PHENAZEPAM [Concomitant]
     Indication: INITIAL INSOMNIA
     Route: 065
     Dates: start: 20120109, end: 20120110
  5. PHENAZEPAM [Concomitant]
     Indication: INITIAL INSOMNIA
     Route: 065
     Dates: start: 20121109
  6. PHENAZEPAM [Concomitant]
     Indication: INSOMNIA
     Route: 065
     Dates: start: 20121109
  7. PHENAZEPAM [Concomitant]
     Indication: INSOMNIA
     Route: 065
     Dates: start: 20120109, end: 20120110
  8. PHENAZEPAM [Concomitant]
     Indication: INSOMNIA
     Route: 065
     Dates: start: 20120309

REACTIONS (1)
  - Schizophrenia [Recovered/Resolved]
